FAERS Safety Report 16306763 (Version 3)
Quarter: 2019Q3

REPORT INFORMATION
  Report Type: Spontaneous
  Country: FR (occurrence: FR)
  Receive Date: 20190513
  Receipt Date: 20190712
  Transmission Date: 20191004
  Serious: Yes (Death, Congenital Anomaly)
  Sender: FDA-Public Use
  Company Number: PHHY2019FR108745

PATIENT

DRUGS (2)
  1. GILENYA [Suspect]
     Active Substance: FINGOLIMOD HYDROCHLORIDE
     Indication: FOETAL EXPOSURE DURING PREGNANCY
     Dosage: MATERNAL DOSE: UNKNOWN
     Route: 064
  2. GILENYA [Suspect]
     Active Substance: FINGOLIMOD HYDROCHLORIDE
     Dosage: MATERNAL DOSE: 1 DF, QD
     Route: 064

REACTIONS (6)
  - Brain malformation [Fatal]
  - Posterior fossa syndrome [Fatal]
  - Foetal exposure during pregnancy [Unknown]
  - Cerebellar hypoplasia [Fatal]
  - Cerebellar dysplasia [Unknown]
  - Urinary tract malformation [Fatal]

NARRATIVE: CASE EVENT DATE: 20181127
